FAERS Safety Report 10008774 (Version 2)
Quarter: 2014Q1

REPORT INFORMATION
  Report Type: Spontaneous
  Country: US (occurrence: US)
  Receive Date: 20140312
  Receipt Date: 20140312
  Transmission Date: 20141002
  Serious: No
  Sender: FDA-Public Use
  Company Number: US-INCYTE CORPORATION-2012IN000800

PATIENT
  Age: 76 Year
  Sex: Female
  Weight: 52.15 kg

DRUGS (5)
  1. JAKAFI [Suspect]
     Indication: MYELOFIBROSIS
     Dosage: 5 MG, QOD
     Route: 048
     Dates: start: 20120214
  2. JAKAFI [Suspect]
     Dosage: 5 MG, BID
     Route: 048
     Dates: start: 20120403
  3. JAKAFI [Suspect]
     Dosage: 5 MG, QD
     Route: 048
     Dates: start: 20120510
  4. LISINOPRIL [Concomitant]
  5. AMLODIPINE [Concomitant]

REACTIONS (4)
  - Hypoaesthesia [Recovered/Resolved]
  - Paraesthesia [Recovered/Resolved]
  - Sensation of heaviness [Recovered/Resolved]
  - Anaemia [Recovered/Resolved]
